FAERS Safety Report 25193586 (Version 2)
Quarter: 2025Q2

REPORT INFORMATION
  Report Type: Spontaneous
  Country: US (occurrence: US)
  Receive Date: 20250414
  Receipt Date: 20250414
  Transmission Date: 20250717
  Serious: Yes (Disabling)
  Sender: GILEAD
  Company Number: US-GILEAD-2025-0710019

PATIENT
  Sex: Female

DRUGS (1)
  1. TRODELVY [Suspect]
     Active Substance: SACITUZUMAB GOVITECAN-HZIY
     Indication: Product used for unknown indication
     Route: 065
     Dates: start: 20250402

REACTIONS (5)
  - Eating disorder [Unknown]
  - Nausea [Unknown]
  - Diarrhoea [Unknown]
  - Stomatitis [Unknown]
  - Headache [Unknown]

NARRATIVE: CASE EVENT DATE: 20250409
